FAERS Safety Report 8913829 (Version 1)
Quarter: 2012Q4

REPORT INFORMATION
  Report Type: 
  Country: US (occurrence: US)
  Receive Date: 20121119
  Receipt Date: 20121119
  Transmission Date: 20130627
  Serious: Yes (Hospitalization)
  Sender: FDA-Public Use
  Company Number: US-BAYER-2012-118614

PATIENT
  Age: 27 Year
  Sex: Female
  Weight: 77.1 kg

DRUGS (9)
  1. BEYAZ [Suspect]
  2. SERTRALINE [Concomitant]
     Dosage: 50 mg,one HS
  3. ZOLPIDEM [Concomitant]
     Indication: INSOMNIA
     Dosage: 10 mg, PRN
  4. SULFAMETHOXAZOLE/TRIMETHOPRIM [Concomitant]
     Dosage: 1 twice a day for 5 days
  5. DILAUDID [Concomitant]
     Dosage: 30
  6. FRAGMIN [Concomitant]
  7. TYLENOL [Concomitant]
  8. ADVIL [Concomitant]
  9. AMBIEN [Concomitant]

REACTIONS (1)
  - Pulmonary embolism [None]
